FAERS Safety Report 4428294-7 (Version None)
Quarter: 2004Q3

REPORT INFORMATION
  Report Type: 
  Country: None (occurrence: None)
  Receive Date: 20040813
  Receipt Date: 20040729
  Transmission Date: 20050211
  Serious: Yes (Other)
  Sender: FDA-Public Use
  Company Number: 2004-DE-04173GD

PATIENT
  Age: 34 Year
  Sex: Female

DRUGS (3)
  1. NEVIRAPINE (NEVIRAPINE) [Suspect]
     Indication: HIV INFECTION
  2. ZIDOVUDINE [Suspect]
     Indication: HIV INFECTION
  3. 3TC (LAMIVUDINE) [Suspect]
     Indication: HIV INFECTION

REACTIONS (1)
  - LACTIC ACIDOSIS [None]
